FAERS Safety Report 8376692-1 (Version None)
Quarter: 2012Q2

REPORT INFORMATION
  Report Type: 
  Country: None (occurrence: None)
  Receive Date: 20120522
  Receipt Date: 20120510
  Transmission Date: 20120825
  Serious: Yes (Death, Other)
  Sender: FDA-Public Use
  Company Number: CH-CELGENEUS-151-50794-12051363

PATIENT

DRUGS (1)
  1. VIDAZA [Suspect]
     Route: 058

REACTIONS (14)
  - FEBRILE NEUTROPENIA [None]
  - RENAL IMPAIRMENT [None]
  - DYSPNOEA [None]
  - NO THERAPEUTIC RESPONSE [None]
  - LEUKAEMIA [None]
  - RETINAL DETACHMENT [None]
  - EMBOLISM [None]
  - TOXICITY TO VARIOUS AGENTS [None]
  - INFECTION [None]
  - ACUTE MYELOID LEUKAEMIA [None]
  - ACUTE MYELOID LEUKAEMIA RECURRENT [None]
  - FATIGUE [None]
  - DISEASE PROGRESSION [None]
  - HAEMORRHAGE [None]
